FAERS Safety Report 12692494 (Version 2)
Quarter: 2016Q3

REPORT INFORMATION
  Report Type: Spontaneous
  Country: DE (occurrence: DE)
  Receive Date: 20160829
  Receipt Date: 20160830
  Transmission Date: 20161109
  Serious: Yes (Other)
  Sender: FDA-Public Use
  Company Number: DE-JNJFOC-20160818409

PATIENT
  Sex: Male

DRUGS (2)
  1. REGAINE MAENNER [Suspect]
     Active Substance: MINOXIDIL
     Route: 065
  2. REGAINE MAENNER [Suspect]
     Active Substance: MINOXIDIL
     Indication: PRODUCT USED FOR UNKNOWN INDICATION
     Route: 065
     Dates: start: 1976

REACTIONS (5)
  - Hypertension [Unknown]
  - Cardiovascular disorder [Unknown]
  - Myocardial infarction [Recovered/Resolved]
  - Inappropriate schedule of drug administration [Unknown]
  - Arrhythmia [Unknown]

NARRATIVE: CASE EVENT DATE: 1997
